FAERS Safety Report 8215666-8 (Version None)
Quarter: 2012Q1

REPORT INFORMATION
  Report Type: 
  Country: None (occurrence: None)
  Receive Date: 20120316
  Receipt Date: 20120313
  Transmission Date: 20120608
  Serious: Yes (Other)
  Sender: FDA-Public Use
  Company Number: US-BAYER-2012-024916

PATIENT
  Age: 25 Year
  Sex: Female

DRUGS (2)
  1. MIRENA [Suspect]
     Indication: CONTRACEPTION
     Dosage: 20 MCG/24HR, CONT
     Route: 015
     Dates: start: 20120308, end: 20120308
  2. MIRENA [Suspect]
     Dosage: 20 MCG/24HR, CONT
     Dates: start: 20120308, end: 20120308

REACTIONS (2)
  - UTERINE PERFORATION [None]
  - DEVICE DISLOCATION [None]
